FAERS Safety Report 17524206 (Version 1)
Quarter: 2020Q1

REPORT INFORMATION
  Report Type: Report from Study
  Country: US (occurrence: US)
  Receive Date: 20200310
  Receipt Date: 20200310
  Transmission Date: 20200409
  Serious: No
  Sender: FDA-Public Use
  Company Number: US-IPSEN BIOPHARMACEUTICALS, INC.-2020-04289

PATIENT
  Sex: Female

DRUGS (2)
  1. SOMATULINE DEPOT [Suspect]
     Active Substance: LANREOTIDE ACETATE
     Indication: ACROMEGALY
     Route: 065
  2. SOMATULINE DEPOT [Suspect]
     Active Substance: LANREOTIDE ACETATE
     Dosage: NOT REPORTED
     Route: 065

REACTIONS (5)
  - Glucose tolerance impaired [Unknown]
  - Off label use [Unknown]
  - Gingival disorder [Unknown]
  - Tremor [Unknown]
  - Hyperhidrosis [Unknown]
